FAERS Safety Report 23535312 (Version 1)
Quarter: 2024Q1

REPORT INFORMATION
  Report Type: Spontaneous
  Country: JP (occurrence: JP)
  Receive Date: 20240218
  Receipt Date: 20240218
  Transmission Date: 20240410
  Serious: Yes (Other)
  Sender: FDA-Public Use
  Company Number: JP-aspen-SDZ2023JP016875AA

PATIENT
  Age: 32 Year
  Sex: Male

DRUGS (3)
  1. NELARABINE [Suspect]
     Active Substance: NELARABINE
     Indication: Precursor T-lymphoblastic lymphoma/leukaemia
     Dosage: 1500 MG/M2, 1 COURSE
     Route: 042
  2. NELARABINE [Suspect]
     Active Substance: NELARABINE
     Dosage: 1500 MG/M2, 2 COURSE
     Route: 042
  3. NELARABINE [Suspect]
     Active Substance: NELARABINE
     Dosage: 1500 MG/M2, 3 COURSE
     Route: 042

REACTIONS (6)
  - Diplegia [Not Recovered/Not Resolved]
  - Neuropathy peripheral [Unknown]
  - Bladder disorder [Unknown]
  - Anorectal disorder [Unknown]
  - Sensory disturbance [Unknown]
  - Movement disorder [Unknown]
